FAERS Safety Report 9641940 (Version 1)
Quarter: 2013Q4

REPORT INFORMATION
  Report Type: Spontaneous
  Country: AU (occurrence: None)
  Receive Date: 20131022
  Receipt Date: 20131022
  Transmission Date: 20140711
  Serious: Yes (Hospitalization)
  Sender: FDA-Public Use
  Company Number: 2013P1020110

PATIENT
  Age: 24 Year
  Sex: Female

DRUGS (2)
  1. VALPROATE SODIUM [Suspect]
     Indication: CONVULSION
  2. DOXEPIN [Suspect]

REACTIONS (9)
  - Loss of consciousness [None]
  - Anxiety [None]
  - Postictal state [None]
  - Confusional state [None]
  - Restlessness [None]
  - Encephalopathy [None]
  - Agitation [None]
  - Convulsion [None]
  - Drug interaction [None]
